FAERS Safety Report 6008064-9 (Version None)
Quarter: 2008Q4

REPORT INFORMATION
  Report Type: 
  Country: None (occurrence: None)
  Receive Date: 20081217
  Receipt Date: 20080812
  Transmission Date: 20090506
  Serious: No
  Sender: FDA-Public Use
  Company Number: US-ASTRAZENECA-2008UW16519

PATIENT
  Age: 64 Year
  Sex: Female
  Weight: 122.5 kg

DRUGS (6)
  1. CRESTOR [Suspect]
     Indication: BLOOD CHOLESTEROL INCREASED
     Route: 048
  2. LISINOPRIL [Concomitant]
  3. LANTUS [Concomitant]
  4. ACTOS [Concomitant]
  5. ASPIRIN [Concomitant]
  6. FLUOXETINE [Concomitant]

REACTIONS (4)
  - ILL-DEFINED DISORDER [None]
  - MOUTH ULCERATION [None]
  - MYALGIA [None]
  - SWOLLEN TONGUE [None]
